FAERS Safety Report 4772137-9 (Version None)
Quarter: 2005Q3

REPORT INFORMATION
  Report Type: 
  Country: None (occurrence: None)
  Receive Date: 20050919
  Receipt Date: 20050907
  Transmission Date: 20060218
  Serious: Yes (Death, Hospitalization)
  Sender: FDA-Public Use
  Company Number: US-JNJFOC-20050902463

PATIENT
  Age: 24 Year
  Sex: Male

DRUGS (2)
  1. ACETAMINOPHEN/PSEUDOEPHEDRINE [Suspect]
     Route: 048
  2. METHADONE HCL [Suspect]
     Route: 048

REACTIONS (6)
  - AGONAL RHYTHM [None]
  - CARDIAC ENZYMES INCREASED [None]
  - COMPLETED SUICIDE [None]
  - HEPATOTOXICITY [None]
  - MIOSIS [None]
  - PNEUMONIA ASPIRATION [None]
